FAERS Safety Report 11119330 (Version 1)
Quarter: 2015Q2

REPORT INFORMATION
  Report Type: Spontaneous
  Country: IE (occurrence: IE)
  Receive Date: 20150518
  Receipt Date: 20150518
  Transmission Date: 20150821
  Serious: Yes (Other)
  Sender: FDA-Public Use
  Company Number: IE-PFIZER INC-2015163371

PATIENT
  Age: 60 Year
  Sex: Female

DRUGS (1)
  1. SOMAVERT [Suspect]
     Active Substance: PEGVISOMANT
     Dosage: 20 MG, UNK

REACTIONS (2)
  - Back disorder [Unknown]
  - Uterine disorder [Unknown]

NARRATIVE: CASE EVENT DATE: 2013
